FAERS Safety Report 7477952-9 (Version None)
Quarter: 2011Q2

REPORT INFORMATION
  Report Type: 
  Country: None (occurrence: None)
  Receive Date: 20110511
  Receipt Date: 20110511
  Transmission Date: 20111010
  Serious: Yes (Other)
  Sender: FDA-Public Use
  Company Number: None

PATIENT
  Age: 52 Year
  Sex: Female
  Weight: 97.5234 kg

DRUGS (4)
  1. FEXOFENADINE [Suspect]
     Indication: BRONCHITIS
     Dosage: 180 MG TABLET ONCE A DAY PO
     Route: 048
     Dates: start: 20110301, end: 20110504
  2. FEXOFENADINE [Suspect]
     Indication: SINUSITIS
     Dosage: 180 MG TABLET ONCE A DAY PO
     Route: 048
     Dates: start: 20110301, end: 20110504
  3. FEXOFENADINE [Suspect]
     Indication: PROPHYLAXIS
     Dosage: 180 MG TABLET ONCE A DAY PO
     Route: 048
     Dates: start: 20110301, end: 20110504
  4. FEXOFENADINE [Suspect]
     Indication: VERTIGO
     Dosage: 180 MG TABLET ONCE A DAY PO
     Route: 048
     Dates: start: 20110301, end: 20110504

REACTIONS (3)
  - BACK PAIN [None]
  - ARTHRALGIA [None]
  - MUSCULAR WEAKNESS [None]
